FAERS Safety Report 20392339 (Version 1)
Quarter: 2022Q1

REPORT INFORMATION
  Report Type: Spontaneous
  Country: US (occurrence: None)
  Receive Date: 20220128
  Receipt Date: 20220128
  Transmission Date: 20220424
  Serious: Yes (unspecified)
  Sender: FDA-Public Use
  Company Number: None

PATIENT
  Age: 37 Year
  Sex: Male
  Weight: 58.51 kg

DRUGS (2)
  1. MAKENA [Suspect]
     Active Substance: HYDROXYPROGESTERONE CAPROATE
     Indication: Short stature
     Dosage: OTHER FREQUENCY : QHS;?
     Route: 058
     Dates: start: 20211105, end: 20211207
  2. MAKENA [Suspect]
     Active Substance: HYDROXYPROGESTERONE CAPROATE
     Indication: Hypopituitarism

REACTIONS (5)
  - Injection site swelling [None]
  - Injection site irritation [None]
  - Injection site erythema [None]
  - Injection site pruritus [None]
  - Maternal exposure during pregnancy [None]

NARRATIVE: CASE EVENT DATE: 20220124
